FAERS Safety Report 13511055 (Version 2)
Quarter: 2017Q2

REPORT INFORMATION
  Report Type: Spontaneous
  Country: DE (occurrence: DE)
  Receive Date: 20170503
  Receipt Date: 20170511
  Transmission Date: 20170830
  Serious: Yes (Death, Other)
  Sender: FDA-Public Use
  Company Number: DE-PFIZER INC-2529773

PATIENT
  Age: 41 Year
  Sex: Female

DRUGS (2)
  1. PACLITAXEL. [Suspect]
     Active Substance: PACLITAXEL
     Indication: CERVIX CARCINOMA
     Dosage: 80 MG/M2, 3 BOUTS OF CHEMOTHERAPY; D1+8+15 Q21D; 18 TO 26.6 GESTATIONAL WEEK
     Route: 041
  2. CISPLATIN. [Suspect]
     Active Substance: CISPLATIN
     Dosage: 75 MG/M2,  3 BOUTS OF CHEMOTHERAPY; D1Q21D; 18 TO 26.6 GESTATIONAL WEEK
     Route: 041

REACTIONS (2)
  - Death [Fatal]
  - Foetal death [Unknown]
